FAERS Safety Report 5009545-7 (Version None)
Quarter: 2006Q2

REPORT INFORMATION
  Report Type: 
  Country: None (occurrence: None)
  Receive Date: 20060522
  Receipt Date: 20060512
  Transmission Date: 20061013
  Serious: Yes (Hospitalization, Other)
  Sender: FDA-Public Use
  Company Number: 2006062954

PATIENT
  Sex: Female
  Weight: 56.6996 kg

DRUGS (1)
  1. BENADRYL [Suspect]
     Indication: HALLUCINATION
     Dosage: 24 TABLETS ONCE, ORAL
     Route: 048

REACTIONS (3)
  - INCORRECT DOSE ADMINISTERED [None]
  - INTENTIONAL DRUG MISUSE [None]
  - LIFE SUPPORT [None]
